FAERS Safety Report 4334461-3 (Version None)
Quarter: 2004Q2

REPORT INFORMATION
  Report Type: 
  Country: None (occurrence: None)
  Receive Date: 20040407
  Receipt Date: 20040326
  Transmission Date: 20050107
  Serious: Yes (Hospitalization)
  Sender: FDA-Public Use
  Company Number: AT-MERCK-0403AUT00013

PATIENT
  Age: 82 Year
  Sex: Female

DRUGS (4)
  1. MODURETIC 5-50 [Suspect]
     Indication: OEDEMA PERIPHERAL
     Route: 048
     Dates: start: 20030811, end: 20030826
  2. MEPHENYTOIN [Concomitant]
     Indication: EPILEPSY
     Route: 048
     Dates: start: 20021101
  3. NICERGOLINE [Concomitant]
     Indication: DEMENTIA
     Route: 048
     Dates: start: 20030301
  4. PROTHIPENDYL HYDROCHLORIDE [Concomitant]
     Indication: SLEEP DISORDER
     Route: 048
     Dates: start: 20011101

REACTIONS (3)
  - BLOOD OSMOLARITY DECREASED [None]
  - HYPONATRAEMIA [None]
  - VOMITING PSYCHOGENIC [None]
